FAERS Safety Report 10374781 (Version 1)
Quarter: 2014Q1

REPORT INFORMATION
  Report Type: Spontaneous
  Country: US (occurrence: None)
  Receive Date: 20140306
  Receipt Date: 20140306
  Transmission Date: 20141002
  Serious: Yes (Hospitalization, Other)
  Sender: FDA-Public Use
  Company Number: 163-21880-13122050

PATIENT
  Age: 67 Year
  Sex: Female

DRUGS (1)
  1. REVLIMID (LENALIDOMIDE) (5 MILLIGRAM, CAPSULES) [Suspect]
     Indication: PLASMA CELL MYELOMA
     Route: 048
     Dates: start: 20130916

REACTIONS (6)
  - Pneumonia [None]
  - Pulmonary embolism [None]
  - Deep vein thrombosis [None]
  - Muscle spasms [None]
  - Bronchitis [None]
  - Phlebitis [None]
